FAERS Safety Report 5070086-2 (Version None)
Quarter: 2006Q3

REPORT INFORMATION
  Report Type: 
  Country: None (occurrence: None)
  Receive Date: 20060803
  Receipt Date: 19991209
  Transmission Date: 20061208
  Serious: Yes (Hospitalization)
  Sender: FDA-Public Use
  Company Number: DE-BRISTOL-MYERS SQUIBB COMPANY-13455639

PATIENT
  Sex: Female

DRUGS (8)
  1. TAXOL [Suspect]
     Indication: CARCINOID TUMOUR
     Route: 042
     Dates: start: 19991209
  2. PLATINEX [Suspect]
     Indication: CARCINOID TUMOUR
     Dates: start: 19980201
  3. CAMPTOSAR [Suspect]
     Indication: CARCINOID TUMOUR
     Dates: start: 19991001
  4. INTERFERON [Suspect]
     Indication: CARCINOID TUMOUR
     Dates: start: 19971001
  5. FOLIC ACID [Suspect]
     Indication: CARCINOID TUMOUR
     Dates: start: 19971101
  6. FLUOROURACIL [Suspect]
     Indication: CARCINOID TUMOUR
     Dates: start: 19971101
  7. GEMCITABINE [Suspect]
     Indication: CARCINOID TUMOUR
     Dates: start: 19980201
  8. EPIRUBICIN [Suspect]
     Indication: CARCINOID TUMOUR
     Dates: start: 19980201

REACTIONS (5)
  - ASPIRATION PLEURAL CAVITY [None]
  - DYSPNOEA [None]
  - FATIGUE [None]
  - MALIGNANT NEOPLASM PROGRESSION [None]
  - THROMBOCYTOPENIA [None]
